FAERS Safety Report 4421353-4 (Version None)
Quarter: 2004Q3

REPORT INFORMATION
  Report Type: 
  Country: None (occurrence: None)
  Receive Date: 20040804
  Receipt Date: 20040722
  Transmission Date: 20050211
  Serious: Yes (Hospitalization)
  Sender: FDA-Public Use
  Company Number: 208023

PATIENT
  Age: 75 Year
  Sex: Male

DRUGS (11)
  1. MABTHERA (RITUXIMAB) CONC FOR SOLUTION FOR INFUSION [Suspect]
     Indication: DIFFUSE LARGE B-CELL LYMPHOMA
     Dosage: INTRAVENOUS
     Route: 042
     Dates: end: 20040421
  2. CYCLOPHOSPHAMIDE [Suspect]
     Indication: DIFFUSE LARGE B-CELL LYMPHOMA
     Dosage: INTRAVENOUS
     Route: 042
  3. DOXORUBICIN HYDROCHLORIDE [Suspect]
     Indication: DIFFUSE LARGE B-CELL LYMPHOMA
     Dosage: INTRAVENOUS
     Route: 042
  4. VINCRISTINE [Suspect]
     Indication: DIFFUSE LARGE B-CELL LYMPHOMA
     Dosage: INTRAVENOUS
     Route: 042
  5. PREDNISONE [Suspect]
     Indication: DIFFUSE LARGE B-CELL LYMPHOMA
     Dosage: ORAL
     Route: 048
  6. METHOTREXATE [Concomitant]
  7. LEVOTHYROXINE SODIUM [Concomitant]
  8. CAPTOPRIL [Concomitant]
  9. CONCOR (BISOPROLOL FUMARATE) [Concomitant]
  10. TICLOPIDINE HCL [Concomitant]
  11. PANTOZOL (PANTOPRAZOLE) [Concomitant]

REACTIONS (3)
  - ELECTROCARDIOGRAM ABNORMAL [None]
  - LUNG INFILTRATION [None]
  - PLEURAL EFFUSION [None]
